FAERS Safety Report 22163569 (Version 4)
Quarter: 2024Q1

REPORT INFORMATION
  Report Type: Report from Study
  Country: US (occurrence: US)
  Receive Date: 20230401
  Receipt Date: 20240314
  Transmission Date: 20240410
  Serious: Yes (Hospitalization, Other)
  Sender: FDA-Public Use
  Company Number: US-002147023-NVSC2023US072746

PATIENT
  Sex: Male

DRUGS (4)
  1. ENTRESTO [Suspect]
     Active Substance: SACUBITRIL\VALSARTAN
     Indication: Product used for unknown indication
     Dosage: 1 DOSAGE FORM, BID
     Route: 048
  2. ENTRESTO [Suspect]
     Active Substance: SACUBITRIL\VALSARTAN
     Dosage: 1 DOSAGE FORM, BID (MAR 2024)
     Route: 048
  3. FUROSEMIDE [Suspect]
     Active Substance: FUROSEMIDE
     Indication: Product used for unknown indication
     Dosage: UNK
     Route: 065
  4. FUROSEMIDE [Suspect]
     Active Substance: FUROSEMIDE
     Dosage: UNK (DECREASED DOSE)
     Route: 065

REACTIONS (10)
  - Fluid retention [Unknown]
  - Loss of consciousness [Unknown]
  - Hypotension [Recovering/Resolving]
  - Dizziness [Unknown]
  - Tremor [Unknown]
  - Haematoma [Unknown]
  - Renal disorder [Unknown]
  - Pain [Unknown]
  - Volume blood decreased [Unknown]
  - Fall [Unknown]
